FAERS Safety Report 5605189-4 (Version None)
Quarter: 2008Q1

REPORT INFORMATION
  Report Type: 
  Country: None (occurrence: None)
  Receive Date: 20080124
  Receipt Date: 20080107
  Transmission Date: 20080703
  Serious: Yes (Congenital Anomaly)
  Sender: FDA-Public Use
  Company Number: 8028914

PATIENT

DRUGS (4)
  1. KEPPRA [Suspect]
     Indication: EPILEPSY
     Dosage: 4500 MG TRP
     Route: 064
  2. FOLIC ACID [Concomitant]
  3. MULTI-VITAMIN [Concomitant]
  4. LAMICTAL [Concomitant]

REACTIONS (2)
  - DRUG EXPOSURE DURING PREGNANCY [None]
  - UMBILICAL CORD VASCULAR DISORDER [None]
